FAERS Safety Report 23133205 (Version 2)
Quarter: 2023Q4

REPORT INFORMATION
  Report Type: Report from Study
  Country: US (occurrence: US)
  Receive Date: 20231101
  Receipt Date: 20231204
  Transmission Date: 20240110
  Serious: Yes (Hospitalization, Other)
  Sender: FDA-Public Use
  Company Number: US-ABBVIE-5474051

PATIENT
  Age: 68 Year
  Sex: Male
  Weight: 95.254 kg

DRUGS (12)
  1. RINVOQ [Suspect]
     Active Substance: UPADACITINIB
     Indication: Rheumatoid arthritis
     Route: 048
     Dates: start: 20220430
  2. VARICELLA-ZOSTER VACCINE NOS [Concomitant]
     Active Substance: VARICELLA-ZOSTER VACCINE
     Indication: Product used for unknown indication
     Dates: start: 2023
  3. METOPROLOL [Concomitant]
     Active Substance: METOPROLOL
     Indication: Heart rate increased
  4. METFORMIN [Concomitant]
     Active Substance: METFORMIN HYDROCHLORIDE
     Indication: Type 2 diabetes mellitus
  5. ATORVASTATIN [Concomitant]
     Active Substance: ATORVASTATIN
     Indication: Blood cholesterol abnormal
  6. ASPIRIN [Concomitant]
     Active Substance: ASPIRIN
     Indication: Thrombosis prophylaxis
  7. OMEPRAZOLE [Concomitant]
     Active Substance: OMEPRAZOLE
     Indication: Gastrointestinal disorder prophylaxis
  8. FISH OIL [Concomitant]
     Active Substance: FISH OIL
     Indication: Supplementation therapy
  9. CELECOXIB [Concomitant]
     Active Substance: CELECOXIB
     Indication: Osteoarthritis
     Dosage: STRENGTH: 200 MG
  10. EZETIMIBE [Concomitant]
     Active Substance: EZETIMIBE
     Indication: Blood cholesterol abnormal
  11. PRASUGREL [Concomitant]
     Active Substance: PRASUGREL
     Indication: Thrombosis prophylaxis
  12. VITAMIN D [Concomitant]
     Active Substance: VITAMIN D NOS
     Indication: Product used for unknown indication

REACTIONS (6)
  - Cataract [Not Recovered/Not Resolved]
  - Headache [Not Recovered/Not Resolved]
  - Fatigue [Not Recovered/Not Resolved]
  - Herpes zoster [Not Recovered/Not Resolved]
  - Blister [Not Recovered/Not Resolved]
  - Sinus congestion [Not Recovered/Not Resolved]

NARRATIVE: CASE EVENT DATE: 20231101
